FAERS Safety Report 16573954 (Version 4)
Quarter: 2020Q1

REPORT INFORMATION
  Report Type: Report from Study
  Country: US (occurrence: US)
  Receive Date: 20190715
  Receipt Date: 20200316
  Transmission Date: 20200409
  Serious: Yes (Life-Threatening, Other)
  Sender: FDA-Public Use
  Company Number: US-OTSUKA-2019_025281

PATIENT
  Age: 31 Year
  Sex: Male

DRUGS (2)
  1. TOLVAPTAN [Suspect]
     Active Substance: TOLVAPTAN
     Indication: CONGENITAL CYSTIC KIDNEY DISEASE
     Dosage: 60 MG, QD (UPON WAKING)
     Route: 048
     Dates: end: 20200304
  2. TOLVAPTAN [Suspect]
     Active Substance: TOLVAPTAN
     Dosage: 30 MG, QD (8 HOURS LATER)
     Route: 048
     Dates: end: 20200304

REACTIONS (3)
  - Polyuria [Not Recovered/Not Resolved]
  - Pain [Not Recovered/Not Resolved]
  - Liver injury [Unknown]

NARRATIVE: CASE EVENT DATE: 20190614
